FAERS Safety Report 17065995 (Version 3)
Quarter: 2019Q4

REPORT INFORMATION
  Report Type: Spontaneous
  Country: AU (occurrence: AU)
  Receive Date: 20191122
  Receipt Date: 20191224
  Transmission Date: 20200122
  Serious: Yes (Other)
  Sender: FDA-Public Use
  Company Number: AU-ASTRAZENECA-2019SF66210

PATIENT
  Age: 45 Year
  Sex: Female

DRUGS (1)
  1. NEXIUM [Suspect]
     Active Substance: ESOMEPRAZOLE MAGNESIUM
     Dosage: 10.0MG UNKNOWN
     Route: 048
     Dates: start: 20191115

REACTIONS (7)
  - Hypersensitivity [Unknown]
  - Pharyngeal swelling [Recovered/Resolved]
  - Dyspnoea [Recovered/Resolved]
  - Pharyngeal ulceration [Unknown]
  - Dysphagia [Unknown]
  - Pharyngeal erythema [Unknown]
  - Enlarged uvula [Unknown]

NARRATIVE: CASE EVENT DATE: 20191115
